FAERS Safety Report 17447398 (Version 2)
Quarter: 2020Q2

REPORT INFORMATION
  Report Type: Spontaneous
  Country: US (occurrence: US)
  Receive Date: 20200221
  Receipt Date: 20200504
  Transmission Date: 20200713
  Serious: Yes (Death, Other)
  Sender: FDA-Public Use
  Company Number: US-NAPPMUNDI-USA-2020-0150020

PATIENT
  Sex: Female

DRUGS (2)
  1. OXYCONTIN [Suspect]
     Active Substance: OXYCODONE HYDROCHLORIDE
     Indication: PAIN
     Dosage: UNK, TID
     Route: 048
     Dates: start: 199704, end: 200108
  2. HYDROCODONE BITARTRATE AND ACETAMINOPHEN [Suspect]
     Active Substance: ACETAMINOPHEN\HYDROCODONE BITARTRATE
     Indication: PAIN
     Route: 048

REACTIONS (11)
  - Drug dependence [Unknown]
  - Off label use [Recovered/Resolved]
  - Death [Fatal]
  - Drug withdrawal syndrome [Unknown]
  - Mental disorder [Unknown]
  - Renal failure [Unknown]
  - Pain [Unknown]
  - Seizure [Unknown]
  - Unevaluable event [Unknown]
  - Toxicity to various agents [Unknown]
  - Fatigue [Unknown]

NARRATIVE: CASE EVENT DATE: 199704
